FAERS Safety Report 7729620-3 (Version None)
Quarter: 2011Q3

REPORT INFORMATION
  Report Type: 
  Country: None (occurrence: None)
  Receive Date: 20110906
  Receipt Date: 20110825
  Transmission Date: 20111222
  Serious: Yes (Death)
  Sender: FDA-Public Use
  Company Number: JP-ELI_LILLY_AND_COMPANY-JP201106005439

PATIENT
  Sex: Female
  Weight: 40 kg

DRUGS (2)
  1. NEUROTROPIN [Concomitant]
     Dosage: 2 DF, BID
     Route: 048
     Dates: start: 20091112, end: 20110510
  2. FORTEO [Suspect]
     Indication: OSTEOPOROSIS
     Dosage: 20 UG, UNK
     Route: 058
     Dates: start: 20110113

REACTIONS (1)
  - DEATH [None]
